FAERS Safety Report 22322494 (Version 3)
Quarter: 2023Q2

REPORT INFORMATION
  Report Type: Spontaneous
  Country: JP (occurrence: JP)
  Receive Date: 20230516
  Receipt Date: 20230605
  Transmission Date: 20230721
  Serious: Yes (Hospitalization, Other)
  Sender: FDA-Public Use
  Company Number: JP-MSD-M2023-18048

PATIENT
  Age: 69 Year
  Sex: Female

DRUGS (2)
  1. KEYTRUDA [Suspect]
     Active Substance: PEMBROLIZUMAB
     Indication: Uterine cancer
     Dosage: 200 MILLIGRAM, Q3W
     Route: 041
     Dates: start: 202211, end: 20230428
  2. LENVATINIB MESYLATE [Suspect]
     Active Substance: LENVATINIB MESYLATE
     Indication: Uterine cancer
     Dosage: 20 MILLIGRAM, QD
     Route: 048
     Dates: start: 202211, end: 20230428

REACTIONS (9)
  - Behaviour disorder [Not Recovered/Not Resolved]
  - Feeling abnormal [Unknown]
  - Speech disorder [Unknown]
  - Gait disturbance [Unknown]
  - Cholecystitis [Recovering/Resolving]
  - Immune-mediated hypothyroidism [Recovering/Resolving]
  - Eastern Cooperative Oncology Group performance status worsened [Unknown]
  - Platelet count decreased [Recovering/Resolving]
  - Blood creatine phosphokinase increased [Recovered/Resolved]

NARRATIVE: CASE EVENT DATE: 20230301
